FAERS Safety Report 20755353 (Version 2)
Quarter: 2022Q2

REPORT INFORMATION
  Report Type: Spontaneous
  Country: NL (occurrence: NL)
  Receive Date: 20220427
  Receipt Date: 20220428
  Transmission Date: 20220721
  Serious: Yes (Other)
  Sender: FDA-Public Use
  Company Number: NL-LRB-00801338

PATIENT
  Age: 77 Year
  Sex: Female

DRUGS (4)
  1. ROSUVASTATIN [Suspect]
     Active Substance: ROSUVASTATIN
     Indication: Hypercholesterolaemia
     Dosage: 10 MILLIGRAM, 1DOSE/1HOUR, 1 X PER DAY 1 TABLET
     Route: 065
     Dates: start: 20170921, end: 20220331
  2. OMEPRAZOL CAPSULE MSR 40MG / Brand name not specifiedOMEPRAZOL CAPS... [Concomitant]
     Indication: Product used for unknown indication
     Dosage: GASTRO-RESISTANT CAPSULE, 40 MG (MILLIGRAMS)
     Route: 065
  3. CALCIUMCARB/COLECALC KAUWTB 2,5G/800IE (1000MG CA) / CALCI CHEW D3 ... [Concomitant]
     Indication: Product used for unknown indication
     Dosage: CHEWABLE TABLET, 2.5 G (GRAMS)/800 UNITS
     Route: 065
  4. BISOPROLOL TABLET   5MG / Brand name not specifiedBISOPROLOL TABLET... [Concomitant]
     Indication: Product used for unknown indication
     Dosage: TABLET, 5 MG (MILLIGRAM) ()
     Route: 065

REACTIONS (2)
  - Hallucination, visual [Recovered/Resolved]
  - Aura [Recovered/Resolved]

NARRATIVE: CASE EVENT DATE: 20211215
